FAERS Safety Report 9919184 (Version 2)
Quarter: 2014Q1

REPORT INFORMATION
  Report Type: Spontaneous
  Country: US (occurrence: US)
  Receive Date: 20140224
  Receipt Date: 20140317
  Transmission Date: 20141002
  Serious: No
  Sender: FDA-Public Use
  Company Number: US-PFIZER INC-2014049119

PATIENT
  Age: 23 Year
  Sex: Female
  Weight: 193 kg

DRUGS (4)
  1. DEPO-PROVERA [Suspect]
     Indication: ENDOMETRIAL CANCER
     Dosage: 150 MG, MONTHLY
     Route: 031
     Dates: start: 201312
  2. DEPO-PROVERA [Suspect]
     Indication: OVARIAN CANCER
  3. HCTZ [Concomitant]
     Indication: HEADACHE
     Dosage: 25 MG, DAILY/AS NEEDED
     Route: 048
  4. ALBUTEROL HFA [Concomitant]
     Dosage: 90 MCG /ACTUATION INHALER, INHALE 2 PUFFS AS INSTRUCTED EVERY 6 HOURS AS NEEDED

REACTIONS (8)
  - Asthenia [Unknown]
  - Fatigue [Unknown]
  - Pain [Unknown]
  - Activities of daily living impaired [Unknown]
  - Fall [Unknown]
  - Dizziness [Unknown]
  - Pain in extremity [Unknown]
  - Off label use [Unknown]
